FAERS Safety Report 4367796-9 (Version None)
Quarter: 2004Q2

REPORT INFORMATION
  Report Type: 
  Country: None (occurrence: None)
  Receive Date: 20040528
  Receipt Date: 20031010
  Transmission Date: 20050107
  Serious: Yes (Hospitalization)
  Sender: FDA-Public Use
  Company Number: US-JNJFOC-20031002550

PATIENT
  Age: 25 Year
  Sex: Female

DRUGS (3)
  1. SPORANOX [Suspect]
     Indication: ASPERGILLOSIS
     Dosage: 200 MG, 2 IN 1 DAY, ORAL
     Route: 048
     Dates: end: 20031003
  2. ANTIBIOTICS (ANTIBIOTICS) [Concomitant]
  3. DRUGS FOR AIDS (ALL OTHER THERAPEUTIC PRODUCTS) [Concomitant]

REACTIONS (2)
  - HEPATITIS [None]
  - TRANSAMINASES INCREASED [None]
